FAERS Safety Report 9980793 (Version 1)
Quarter: 2014Q1

REPORT INFORMATION
  Report Type: Report from Study
  Country: US (occurrence: US)
  Receive Date: 20140307
  Receipt Date: 20140307
  Transmission Date: 20141002
  Serious: Yes (Life-Threatening, Hospitalization)
  Sender: FDA-Public Use
  Company Number: US-ROCHE-1333588

PATIENT
  Age: 75 Year
  Sex: Female

DRUGS (12)
  1. LUCENTIS [Suspect]
     Indication: RETINAL NEOVASCULARISATION
     Dosage: THERAPY DATE: FEB/2007,23/MAR/2011, 01/JUN/2011, 20/JUL/2011, 31/AUG/2011, 12/OCT/2011, 23/NOV/2011,
     Route: 050
  2. LUCENTIS [Suspect]
     Indication: AGE-RELATED MACULAR DEGENERATION
  3. ASPIRIN [Concomitant]
     Route: 065
  4. MICARDIS [Concomitant]
     Route: 065
  5. OCUVITE PRESERVISION [Concomitant]
  6. PAXIL [Concomitant]
     Route: 065
  7. SYNTHROID [Concomitant]
     Dosage: 88 MCG
     Route: 065
  8. TOPROL [Concomitant]
     Route: 065
  9. OXYGEN [Concomitant]
     Route: 065
  10. TYLENOL [Concomitant]
  11. XANAX [Concomitant]
  12. TRETINOIN [Concomitant]
     Indication: LUNG NEOPLASM MALIGNANT
     Route: 065
     Dates: start: 201106

REACTIONS (7)
  - Lung neoplasm malignant [Unknown]
  - Pneumonia [Unknown]
  - Chronic obstructive pulmonary disease [Unknown]
  - Contusion [Unknown]
  - Anxiety [Unknown]
  - Visual acuity reduced [Unknown]
  - Deafness [Unknown]
